FAERS Safety Report 13649152 (Version 2)
Quarter: 2017Q2

REPORT INFORMATION
  Report Type: Spontaneous
  Country: US (occurrence: US)
  Receive Date: 20170613
  Receipt Date: 20170617
  Transmission Date: 20170830
  Serious: Yes (Death)
  Sender: FDA-Public Use
  Company Number: US-VIFOR (INTERNATIONAL) INC.-VIT-2017-06490

PATIENT
  Age: 76 Year
  Sex: Female

DRUGS (11)
  1. FAMOTIDINE. [Concomitant]
     Active Substance: FAMOTIDINE
  2. ERGOCALCIFEROL. [Concomitant]
     Active Substance: ERGOCALCIFEROL
  3. VELTASSA [Suspect]
     Active Substance: PATIROMER
  4. WARFARIN SODIUM. [Concomitant]
     Active Substance: WARFARIN SODIUM
  5. SIMVASTATIN. [Concomitant]
     Active Substance: SIMVASTATIN
  6. SENSIPAR [Concomitant]
     Active Substance: CINACALCET HYDROCHLORIDE
  7. NOVOLOG [Concomitant]
     Active Substance: INSULIN ASPART
  8. LISINOPRIL. [Concomitant]
     Active Substance: LISINOPRIL
  9. VELTASSA [Suspect]
     Active Substance: PATIROMER
     Indication: HYPERKALAEMIA
     Route: 048
     Dates: start: 20170110
  10. NIFEDICAL XL [Concomitant]
     Active Substance: NIFEDIPINE
  11. LANTUS [Concomitant]
     Active Substance: INSULIN GLARGINE

REACTIONS (1)
  - Death [Fatal]

NARRATIVE: CASE EVENT DATE: 20170525
